FAERS Safety Report 23683831 (Version 1)
Quarter: 2024Q1

REPORT INFORMATION
  Report Type: Spontaneous
  Country: ES (occurrence: None)
  Receive Date: 20240328
  Receipt Date: 20240328
  Transmission Date: 20240409
  Serious: Yes (Hospitalization)
  Sender: FDA-Public Use
  Company Number: 2024A068028

PATIENT
  Age: 63 Year
  Sex: Female

DRUGS (2)
  1. LYNPARZA [Interacting]
     Active Substance: OLAPARIB
     Indication: Breast neoplasm
     Route: 048
     Dates: start: 20220609, end: 20221221
  2. TACROLIMUS [Interacting]
     Active Substance: TACROLIMUS
     Indication: Erythema nodosum
     Route: 048
     Dates: start: 20220622

REACTIONS (1)
  - Pneumocystis jirovecii pneumonia [Recovered/Resolved]

NARRATIVE: CASE EVENT DATE: 20221225
